FAERS Safety Report 5702598-X (Version None)
Quarter: 2008Q2

REPORT INFORMATION
  Report Type: 
  Country: None (occurrence: None)
  Receive Date: 20080408
  Receipt Date: 20080304
  Transmission Date: 20081010
  Serious: Yes (Hospitalization)
  Sender: FDA-Public Use
  Company Number: WAES 0801GBR00078

PATIENT
  Age: 41 Year
  Sex: Male

DRUGS (16)
  1. ISENTRESS [Suspect]
     Indication: HIV INFECTION
     Dosage: 400 MG PO; 400 MG PO
     Route: 048
     Dates: start: 20071216, end: 20080108
  2. ISENTRESS [Suspect]
     Indication: HIV INFECTION
     Dosage: 400 MG PO; 400 MG PO
     Route: 048
     Dates: start: 20080215
  3. DARUNAVIR [Suspect]
     Indication: HIV INFECTION
     Dosage: 600 MG/BID
     Dates: start: 20071215, end: 20080104
  4. LAMIVUDINE [Suspect]
     Indication: HIV INFECTION
     Dates: start: 19970207, end: 20080108
  5. LAMIVUDINE [Suspect]
     Indication: HIV INFECTION
     Dates: start: 20080215
  6. MARAVIROC [Suspect]
     Indication: HIV INFECTION
     Dosage: 150 MG/BID; 200 MG/BID
     Dates: start: 20071215, end: 20080108
  7. MARAVIROC [Suspect]
     Indication: HIV INFECTION
     Dosage: 150 MG/BID; 200 MG/BID
     Dates: start: 20080215
  8. CYCLOPHOSPHAMIDE [Suspect]
     Indication: HIV INFECTION
     Dates: start: 20071216, end: 20080104
  9. OMACOR [Concomitant]
  10. SEPTRIN [Concomitant]
  11. ASPIRIN [Concomitant]
  12. ATORVASTATIN CALCIUM [Concomitant]
  13. RITONAVIR [Concomitant]
  14. SULFAMETHOXAZOLE AND TRIMETHOPRIM [Concomitant]
  15. TIPRANAVIR [Concomitant]
  16. VITAMINS [Concomitant]

REACTIONS (6)
  - ABDOMINAL DISTENSION [None]
  - COUGH [None]
  - DYSPHAGIA [None]
  - NAUSEA [None]
  - STEVENS-JOHNSON SYNDROME [None]
  - WEIGHT DECREASED [None]
